FAERS Safety Report 6072607-X (Version None)
Quarter: 2009Q1

REPORT INFORMATION
  Report Type: 
  Country: None (occurrence: None)
  Receive Date: 20090210
  Receipt Date: 20090204
  Transmission Date: 20090719
  Serious: Yes (Hospitalization)
  Sender: FDA-Public Use
  Company Number: US-ELI_LILLY_AND_COMPANY-US200902000862

PATIENT
  Sex: Male
  Weight: 90.249 kg

DRUGS (11)
  1. BYETTA [Suspect]
     Indication: TYPE 2 DIABETES MELLITUS
     Dosage: 5 UG, 2/D
     Route: 058
     Dates: start: 20060101, end: 20060101
  2. BYETTA [Suspect]
     Dosage: 10 UG, 2/D
     Route: 058
     Dates: start: 20060101
  3. GLUCOVANCE [Concomitant]
     Dosage: UNK, 2/D
  4. VYTORIN [Concomitant]
     Dosage: UNK, DAILY (1/D)
  5. COZAAR [Concomitant]
     Dosage: UNK, DAILY (1/D)
  6. TRICOR [Concomitant]
     Dosage: UNK, DAILY (1/D)
  7. METOPROLOL TARTRATE [Concomitant]
     Dosage: UNK, UNKNOWN
     Dates: start: 20070101, end: 20090101
  8. ASPIRIN [Concomitant]
     Dosage: UNK, UNKNOWN
  9. MULTI-VITAMIN [Concomitant]
     Dosage: UNK, UNKNOWN
  10. VITAMIN E [Concomitant]
     Dosage: UNK, UNKNOWN
  11. ANALGESICS [Concomitant]
     Indication: PAIN
     Dosage: UNK, UNKNOWN

REACTIONS (6)
  - BLOOD GLUCOSE INCREASED [None]
  - CONSTIPATION [None]
  - CORONARY ARTERY OCCLUSION [None]
  - FLANK PAIN [None]
  - NEPHROLITHIASIS [None]
  - WEIGHT DECREASED [None]
